FAERS Safety Report 11674559 (Version 2)
Quarter: 2015Q4

REPORT INFORMATION
  Report Type: Spontaneous
  Country: SE (occurrence: SE)
  Receive Date: 20151028
  Receipt Date: 20151029
  Transmission Date: 20160304
  Serious: Yes (Hospitalization)
  Sender: FDA-Public Use
  Company Number: SE-PFIZER INC-2015354942

PATIENT
  Age: 20 Year
  Sex: Female

DRUGS (5)
  1. LAMOTRIGINE. [Suspect]
     Active Substance: LAMOTRIGINE
     Dosage: 1.4 G (7 TABLETS), SINGLE
     Route: 048
     Dates: start: 20150928, end: 20150928
  2. ZYPREXA [Suspect]
     Active Substance: OLANZAPINE
     Dosage: 70 MG (7 TABLETS), SINGLE
     Route: 048
     Dates: start: 20150928, end: 20150928
  3. NOZINAN [Suspect]
     Active Substance: LEVOMEPROMAZINE
     Dosage: 175 MG (7 TABLETS), SINGLE
     Route: 048
     Dates: start: 20150928, end: 20150928
  4. ALGANEX [Suspect]
     Active Substance: TENOXICAM
     Dosage: UNK
     Dates: start: 20150928, end: 20150928
  5. LYRICA [Suspect]
     Active Substance: PREGABALIN
     Dosage: 7-14 TABLETS, SINGLE
     Dates: start: 20150928, end: 20150928

REACTIONS (5)
  - Overdose [Unknown]
  - Intentional self-injury [Unknown]
  - Toxicity to various agents [Unknown]
  - Fatigue [Unknown]
  - Lethargy [Unknown]

NARRATIVE: CASE EVENT DATE: 20150928
